FAERS Safety Report 8040607-6 (Version None)
Quarter: 2012Q1

REPORT INFORMATION
  Report Type: 
  Country: None (occurrence: None)
  Receive Date: 20120111
  Receipt Date: 20111230
  Transmission Date: 20120608
  Serious: No
  Sender: FDA-Public Use
  Company Number: US-AMGEN-USASP2011067990

PATIENT
  Age: 56 Year
  Sex: Female
  Weight: 72.562 kg

DRUGS (8)
  1. INDERAL [Concomitant]
     Dosage: 10 MG, UNK
  2. ASPIRIN [Concomitant]
     Dosage: 81 MG, UNK
  3. MULTI-VITAMINS [Concomitant]
  4. ZOLOFT [Concomitant]
     Dosage: 25 MG, UNK
  5. ENBREL [Suspect]
     Indication: PSORIASIS
     Dosage: 50 MG, QWK
     Route: 058
     Dates: start: 20111115, end: 20111215
  6. LOVAZA [Concomitant]
     Dosage: 1 G, UNK
  7. CALCIUM [Concomitant]
     Dosage: 500 UNK, UNK
  8. ZETIA [Concomitant]
     Dosage: 10 MG, UNK

REACTIONS (4)
  - PRURITUS [None]
  - DISTURBANCE IN ATTENTION [None]
  - MENTAL STATUS CHANGES [None]
  - FEELING ABNORMAL [None]
